FAERS Safety Report 9408816 (Version 2)
Quarter: 2013Q3

REPORT INFORMATION
  Report Type: Spontaneous
  Country: IT (occurrence: IT)
  Receive Date: 20130719
  Receipt Date: 20130823
  Transmission Date: 20140515
  Serious: Yes (Hospitalization, Other)
  Sender: FDA-Public Use
  Company Number: IT-009507513-1307ITA006291

PATIENT
  Age: 77 Year
  Sex: Female

DRUGS (2)
  1. FOSAVANCE [Suspect]
     Indication: OSTEOPOROSIS
     Dosage: 1 DF, QW, STRENGTH: 70MG+70MCG
     Route: 048
     Dates: start: 20060301, end: 20130113
  2. ADVANTAN [Concomitant]
     Indication: MYCOSIS FUNGOIDES
     Dosage: UNK
     Route: 061
     Dates: start: 20090228

REACTIONS (2)
  - Atypical femur fracture [Recovered/Resolved]
  - Limb operation [Recovered/Resolved]
